FAERS Safety Report 16304580 (Version 1)
Quarter: 2019Q2

REPORT INFORMATION
  Report Type: Spontaneous
  Country: US (occurrence: US)
  Receive Date: 20190513
  Receipt Date: 20190513
  Transmission Date: 20190711
  Serious: No
  Sender: FDA-Public Use
  Company Number: US-IMPAX LABORATORIES, LLC-2019-IPXL-00457

PATIENT
  Sex: Female

DRUGS (1)
  1. FLUDROCORTISONE ACETATE. [Suspect]
     Active Substance: FLUDROCORTISONE ACETATE
     Indication: POSTURAL ORTHOSTATIC TACHYCARDIA SYNDROME
     Dosage: UNK
     Route: 048

REACTIONS (6)
  - Product substitution issue [Unknown]
  - Condition aggravated [Unknown]
  - Dizziness [Unknown]
  - Product use in unapproved indication [Unknown]
  - Nausea [Unknown]
  - Fatigue [Unknown]
